FAERS Safety Report 4919220-2 (Version None)
Quarter: 2006Q1

REPORT INFORMATION
  Report Type: 
  Country: None (occurrence: None)
  Receive Date: 20060113
  Receipt Date: 20051031
  Transmission Date: 20060701
  Serious: No
  Sender: FDA-Public Use
  Company Number: 2005SP003746

PATIENT
  Age: 61 Year
  Sex: Male
  Weight: 124.7392 kg

DRUGS (6)
  1. LUNESTA [Suspect]
     Indication: INSOMNIA
     Dosage: 2 MG; HS; ORAL
     Route: 048
     Dates: start: 20051017, end: 20051001
  2. HYDROCHLOROTHIAZIDE [Concomitant]
  3. ATORVASTATIN CALCIUM [Concomitant]
  4. VICODIN [Concomitant]
  5. SALICYLIC ACID [Concomitant]
  6. MULTIVITAMIN [Concomitant]

REACTIONS (1)
  - DYSGEUSIA [None]
